FAERS Safety Report 4314224-5 (Version None)
Quarter: 2004Q1

REPORT INFORMATION
  Report Type: 
  Country: None (occurrence: None)
  Receive Date: 20040302
  Receipt Date: 20030924
  Transmission Date: 20041129
  Serious: No
  Sender: FDA-Public Use
  Company Number: 2003-06115

PATIENT
  Age: 49 Year
  Sex: Male
  Weight: 103.4201 kg

DRUGS (3)
  1. EMTRICITABINE [Suspect]
     Indication: HIV INFECTION
     Dosage: 200 MG QD PO
     Route: 048
     Dates: start: 20030814
  2. VIREAD [Suspect]
     Indication: HIV INFECTION
     Dates: start: 20030717
  3. DAPSONE [Concomitant]

REACTIONS (2)
  - GILBERT'S SYNDROME [None]
  - HYPERBILIRUBINAEMIA [None]
